FAERS Safety Report 14274860 (Version 1)
Quarter: 2017Q4

REPORT INFORMATION
  Report Type: Spontaneous
  Country: DE (occurrence: DE)
  Receive Date: 20171212
  Receipt Date: 20171212
  Transmission Date: 20180321
  Serious: Yes (Hospitalization)
  Sender: FDA-Public Use
  Company Number: DE-AMGEN-DEUSP2017183208

PATIENT
  Age: 72 Year
  Sex: Female

DRUGS (1)
  1. PROCORALAN [Suspect]
     Active Substance: IVABRADINE
     Indication: HEART RATE INCREASED
     Dosage: 5 MG, BID
     Route: 048
     Dates: start: 2017, end: 201712

REACTIONS (3)
  - Blood pressure decreased [Not Recovered/Not Resolved]
  - Off label use [Unknown]
  - Abdominal operation [Unknown]

NARRATIVE: CASE EVENT DATE: 201711
